FAERS Safety Report 9666828 (Version 2)
Quarter: 2014Q1

REPORT INFORMATION
  Report Type: Spontaneous
  Country: US (occurrence: US)
  Receive Date: 20131104
  Receipt Date: 20140224
  Transmission Date: 20141002
  Serious: No
  Sender: FDA-Public Use
  Company Number: US-BIOGENIDEC-2013BI087888

PATIENT
  Age: 62 Year
  Sex: Female

DRUGS (1)
  1. TECFIDERA [Suspect]
     Indication: MULTIPLE SCLEROSIS
     Dates: start: 201308, end: 201310

REACTIONS (6)
  - Urticaria [Unknown]
  - Prescribed underdose [Recovered/Resolved]
  - Multiple sclerosis [Recovered/Resolved with Sequelae]
  - Flushing [Unknown]
  - Feeling hot [Unknown]
  - Pruritus [Unknown]
